FAERS Safety Report 18410340 (Version 4)
Quarter: 2021Q2

REPORT INFORMATION
  Report Type: Report from Study
  Country: CA (occurrence: CA)
  Receive Date: 20201021
  Receipt Date: 20210526
  Transmission Date: 20210717
  Serious: Yes (Other)
  Sender: FDA-Public Use
  Company Number: CA-BRISTOL-MYERS SQUIBB COMPANY-BMS-2020-086875

PATIENT
  Age: 74 Year
  Sex: Female

DRUGS (1)
  1. ABATACEPT [Suspect]
     Active Substance: ABATACEPT
     Indication: PRODUCT USED FOR UNKNOWN INDICATION
     Dosage: 750 MILLIGRAM, Q4WK
     Route: 042

REACTIONS (5)
  - Hypotension [Recovered/Resolved]
  - Blood pressure diastolic decreased [Unknown]
  - Blood pressure systolic increased [Recovered/Resolved]
  - Oxygen saturation decreased [Unknown]
  - Body temperature decreased [Unknown]

NARRATIVE: CASE EVENT DATE: 20201015
